FAERS Safety Report 4719598-9 (Version None)
Quarter: 2005Q3

REPORT INFORMATION
  Report Type: 
  Country: None (occurrence: None)
  Receive Date: 20050721
  Receipt Date: 20040413
  Transmission Date: 20060218
  Serious: No
  Sender: FDA-Public Use
  Company Number: US-GLAXOSMITHKLINE-A0508174A

PATIENT
  Age: 52 Year
  Sex: Female
  Weight: 110.5 kg

DRUGS (14)
  1. AVANDIA [Suspect]
     Dosage: 8MG PER DAY
     Route: 048
     Dates: start: 20010301, end: 20020901
  2. NEURONTIN [Concomitant]
     Indication: DRUG USE FOR UNKNOWN INDICATION
  3. KERLONE [Concomitant]
     Indication: DRUG USE FOR UNKNOWN INDICATION
     Dosage: .5TAB PER DAY
  4. VIOXX [Concomitant]
     Indication: DRUG USE FOR UNKNOWN INDICATION
  5. ZYPREXA [Concomitant]
     Indication: DRUG USE FOR UNKNOWN INDICATION
  6. ACCUPRIL [Concomitant]
     Indication: DRUG USE FOR UNKNOWN INDICATION
     Dosage: 20MG PER DAY
  7. NORVASC [Concomitant]
     Indication: DRUG USE FOR UNKNOWN INDICATION
     Dosage: 2.5MG TWICE PER DAY
  8. AMITRIPTYLINE HCL [Concomitant]
     Indication: DRUG USE FOR UNKNOWN INDICATION
  9. AMARYL [Concomitant]
     Indication: DRUG USE FOR UNKNOWN INDICATION
     Dosage: 4MG PER DAY
  10. NITROGLYCERIN [Concomitant]
     Indication: DRUG USE FOR UNKNOWN INDICATION
  11. ULTRAM [Concomitant]
     Indication: DRUG USE FOR UNKNOWN INDICATION
     Dosage: 50MG AS REQUIRED
     Route: 048
  12. PERPHENAZINE AND AMITRIPTYLINE HCL [Concomitant]
     Indication: DRUG USE FOR UNKNOWN INDICATION
     Dosage: 1TAB TWICE PER DAY
  13. INSULIN [Concomitant]
     Dates: start: 20030401
  14. GLUCOPHAGE [Concomitant]

REACTIONS (1)
  - ADVERSE EVENT [None]
